FAERS Safety Report 4337512-5 (Version None)
Quarter: 2004Q2

REPORT INFORMATION
  Report Type: 
  Country: None (occurrence: None)
  Receive Date: 20040413
  Receipt Date: 20040119
  Transmission Date: 20050107
  Serious: Yes (Life-Threatening, Disabling, Other)
  Sender: FDA-Public Use
  Company Number: US-GLAXOSMITHKLINE-A0494546A

PATIENT
  Age: 44 Year
  Sex: Female

DRUGS (5)
  1. LAMICTAL [Suspect]
     Indication: BIPOLAR DISORDER
     Dosage: 50MG TWICE PER DAY
     Route: 048
     Dates: start: 20031210, end: 20040105
  2. LEXAPRO [Concomitant]
     Dosage: 20MG PER DAY
     Route: 048
     Dates: start: 20030416
  3. GEODON [Concomitant]
     Dosage: 80MG AT NIGHT
     Route: 048
     Dates: start: 20020601
  4. DESYREL [Concomitant]
     Dosage: 50MG AT NIGHT
     Route: 048
     Dates: start: 20021201
  5. ATIVAN [Concomitant]
     Dosage: 1MG AS REQUIRED
     Route: 048
     Dates: start: 20021001

REACTIONS (7)
  - ASTHENIA [None]
  - BLISTER [None]
  - DYSPHAGIA [None]
  - PLATELET COUNT INCREASED [None]
  - RASH [None]
  - STEVENS-JOHNSON SYNDROME [None]
  - WHITE BLOOD CELL COUNT INCREASED [None]
